FAERS Safety Report 7380821-6 (Version None)
Quarter: 2011Q1

REPORT INFORMATION
  Report Type: 
  Country: None (occurrence: None)
  Receive Date: 20110329
  Receipt Date: 20110321
  Transmission Date: 20110831
  Serious: Yes (Hospitalization)
  Sender: FDA-Public Use
  Company Number: A0920141A

PATIENT
  Age: 63 Year
  Sex: Male

DRUGS (7)
  1. DEXAMETHASONE [Suspect]
     Indication: AMYLOIDOSIS
     Dates: start: 20110104, end: 20110305
  2. FLUCONAZOLE [Concomitant]
  3. LEVOFLOXACIN [Concomitant]
  4. MELPHALAN [Suspect]
     Indication: AMYLOIDOSIS
     Route: 042
     Dates: start: 20110222, end: 20110223
  5. VELCADE [Suspect]
     Indication: AMYLOIDOSIS
     Route: 042
     Dates: start: 20110104, end: 20110228
  6. ACYCLOVIR [Concomitant]
  7. FILGRASTIM [Concomitant]

REACTIONS (12)
  - FATIGUE [None]
  - STOMATITIS [None]
  - HICCUPS [None]
  - DIARRHOEA [None]
  - ABDOMINAL PAIN LOWER [None]
  - DYSURIA [None]
  - VENTRICULAR TACHYCARDIA [None]
  - GASTROINTESTINAL INFLAMMATION [None]
  - ATELECTASIS [None]
  - POLLAKIURIA [None]
  - HYPOPHAGIA [None]
  - NEUTROPENIA [None]
